FAERS Safety Report 9300663 (Version 1)
Quarter: 2013Q2

REPORT INFORMATION
  Report Type: Spontaneous
  Country: US (occurrence: None)
  Receive Date: 20130520
  Receipt Date: 20130520
  Transmission Date: 20140414
  Serious: Yes (Other)
  Sender: FDA-Public Use
  Company Number: None

PATIENT
  Sex: Female
  Weight: 74.7 kg

DRUGS (2)
  1. RITALIN [Suspect]
     Indication: NARCOLEPSY
     Dosage: 1 TAB Q3H WHILEAWAKE ORAL ?1979 OR 1980 FOR ONE MONTH?
     Route: 048
  2. RITALIN [Suspect]
     Indication: CATAPLEXY
     Dosage: 1 TAB Q3H WHILEAWAKE ORAL ?1979 OR 1980 FOR ONE MONTH?
     Route: 048

REACTIONS (6)
  - Somnolence [None]
  - Impaired driving ability [None]
  - Impaired work ability [None]
  - Quality of life decreased [None]
  - Product substitution issue [None]
  - Therapeutic response unexpected with drug substitution [None]
